FAERS Safety Report 8237169-7 (Version None)
Quarter: 2012Q1

REPORT INFORMATION
  Report Type: 
  Country: None (occurrence: None)
  Receive Date: 20120327
  Receipt Date: 20120319
  Transmission Date: 20120608
  Serious: Yes (Other)
  Sender: FDA-Public Use
  Company Number: US-BAYER-2012-027059

PATIENT
  Sex: Female

DRUGS (2)
  1. MIRENA [Suspect]
     Dosage: 20 MCG/24HR, CONT
     Dates: start: 20090101, end: 20120101
  2. COUMADIN [Interacting]
     Indication: PROPHYLAXIS

REACTIONS (2)
  - AMENORRHOEA [None]
  - DRUG LEVEL BELOW THERAPEUTIC [None]
